FAERS Safety Report 4482411-1 (Version None)
Quarter: 2004Q4

REPORT INFORMATION
  Report Type: 
  Country: None (occurrence: None)
  Receive Date: 20041022
  Receipt Date: 20040804
  Transmission Date: 20050328
  Serious: No
  Sender: FDA-Public Use
  Company Number: US-BRISTOL-MYERS SQUIBB COMPANY-12661401

PATIENT
  Sex: Male

DRUGS (1)
  1. BUSPAR [Suspect]
     Indication: OVERDOSE
     Route: 048
     Dates: start: 20040803, end: 20040803

REACTIONS (1)
  - OVERDOSE [None]
